FAERS Safety Report 7549867-9 (Version None)
Quarter: 2011Q2

REPORT INFORMATION
  Report Type: 
  Country: None (occurrence: None)
  Receive Date: 20110615
  Receipt Date: 20110606
  Transmission Date: 20111010
  Serious: Yes (Hospitalization)
  Sender: FDA-Public Use
  Company Number: US-ASTRAZENECA-2011SE28087

PATIENT
  Age: 32 Year
  Sex: Male
  Weight: 108.9 kg

DRUGS (3)
  1. SYMBICORT [Suspect]
     Dosage: 160/4.5 UG,TWO PUFFS, BID
     Route: 055
  2. NEXIUM [Suspect]
     Route: 048
  3. SEROQUEL [Suspect]
     Route: 048

REACTIONS (3)
  - PNEUMONIA [None]
  - MALAISE [None]
  - DRUG DOSE OMISSION [None]
